FAERS Safety Report 8074233-X (Version None)
Quarter: 2012Q1

REPORT INFORMATION
  Report Type: 
  Country: None (occurrence: None)
  Receive Date: 20120126
  Receipt Date: 20120120
  Transmission Date: 20120608
  Serious: Yes (Hospitalization)
  Sender: FDA-Public Use
  Company Number: US-AMGEN-USASP2012004279

PATIENT
  Age: 55 Year
  Sex: Female

DRUGS (4)
  1. KEPPRA [Concomitant]
  2. KLONOPIN [Concomitant]
  3. NEURONTIN [Concomitant]
  4. PROLIA [Suspect]
     Indication: OSTEOPOROSIS POSTMENOPAUSAL
     Dates: start: 20110830

REACTIONS (1)
  - STATUS EPILEPTICUS [None]
